FAERS Safety Report 16033126 (Version 1)
Quarter: 2019Q1

REPORT INFORMATION
  Report Type: Spontaneous
  Country: US (occurrence: US)
  Receive Date: 20190305
  Receipt Date: 20190305
  Transmission Date: 20190418
  Serious: No
  Sender: FDA-Public Use
  Company Number: US-AMGEN-USASP2019030935

PATIENT
  Age: 62 Year
  Sex: Female

DRUGS (8)
  1. LEVOTHYROXINE. [Concomitant]
     Active Substance: LEVOTHYROXINE
     Indication: HYPOTHYROIDISM
  2. VITAMIN D [Concomitant]
     Active Substance: CHOLECALCIFEROL
  3. PROLIA [Suspect]
     Active Substance: DENOSUMAB
     Indication: OSTEOPOROSIS POSTMENOPAUSAL
     Dosage: 60 MG, Q6MO
     Route: 065
     Dates: start: 2018
  4. MULTIVITAMIN [Concomitant]
     Active Substance: VITAMINS
  5. IODINE. [Concomitant]
     Active Substance: IODINE
     Indication: HYPOTHYROIDISM
     Dosage: UNK UNK, QOD
  6. CALCIUM [Concomitant]
     Active Substance: CALCIUM
  7. NATURE-THROID [Concomitant]
     Active Substance: THYROID, PORCINE
     Indication: HYPOTHYROIDISM
  8. VITAMIN K2 [Concomitant]
     Active Substance: MENAQUINONE 6
     Indication: ARTERIAL DISORDER
     Dosage: UNK
     Dates: start: 2018

REACTIONS (8)
  - Rash macular [Unknown]
  - Skin exfoliation [Unknown]
  - Lip exfoliation [Unknown]
  - Chapped lips [Unknown]
  - Rash [Unknown]
  - Rash pruritic [Unknown]
  - Dry skin [Unknown]
  - Oral discomfort [Unknown]

NARRATIVE: CASE EVENT DATE: 2018
